FAERS Safety Report 14634591 (Version 1)
Quarter: 2018Q1

REPORT INFORMATION
  Report Type: Spontaneous
  Country: US (occurrence: US)
  Receive Date: 20180314
  Receipt Date: 20180314
  Transmission Date: 20180509
  Serious: No
  Sender: FDA-Public Use
  Company Number: US-PFIZER INC-2018105166

PATIENT
  Age: 72 Year
  Sex: Female

DRUGS (1)
  1. NITROGLYCERIN. [Suspect]
     Active Substance: NITROGLYCERIN
     Indication: TRANSPLANT FAILURE
     Dosage: UNK
     Route: 003

REACTIONS (2)
  - Application site erythema [Unknown]
  - Off label use [Unknown]
